FAERS Safety Report 13036946 (Version 1)
Quarter: 2016Q4

REPORT INFORMATION
  Report Type: Spontaneous
  Country: GB (occurrence: GB)
  Receive Date: 20161216
  Receipt Date: 20161216
  Transmission Date: 20170207
  Serious: Yes (Hospitalization)
  Sender: FDA-Public Use
  Company Number: GB-DEPOMED, INC.-GB-2016DEP012927

PATIENT
  Age: 34 Year
  Sex: Male

DRUGS (1)
  1. FENTANYL. [Suspect]
     Active Substance: FENTANYL
     Indication: DRUG ABUSE
     Dosage: UNK
     Route: 055

REACTIONS (10)
  - Respiratory failure [Recovering/Resolving]
  - Dyspnoea [Unknown]
  - Aspiration [Unknown]
  - Pneumonitis chemical [Unknown]
  - Loss of consciousness [Recovered/Resolved]
  - Acute respiratory distress syndrome [Recovering/Resolving]
  - Vomiting [Unknown]
  - Drug abuse [Unknown]
  - Coma [Recovered/Resolved]
  - Lung infiltration [Unknown]
